FAERS Safety Report 9315930 (Version 1)
Quarter: 2013Q2

REPORT INFORMATION
  Report Type: Spontaneous
  Country: JP (occurrence: JP)
  Receive Date: 20130530
  Receipt Date: 20130530
  Transmission Date: 20140414
  Serious: Yes (Other)
  Sender: FDA-Public Use
  Company Number: JP-AMGEN-JPNSP2013035004

PATIENT
  Age: 29 Year
  Sex: Female

DRUGS (3)
  1. ENBREL [Suspect]
     Indication: RHEUMATOID ARTHRITIS
     Dosage: 25 MG, WEEKLY
     Route: 058
     Dates: start: 20130206
  2. ENBREL [Suspect]
     Dosage: 50 MG, WEEKLY
     Route: 058
     Dates: start: 20130319, end: 20130410
  3. PREDONINE                          /00016201/ [Concomitant]
     Indication: RHEUMATOID ARTHRITIS
     Dosage: 2.5 TO 5 MG/DAY, AS NECESSARY
     Route: 048
     Dates: start: 201202

REACTIONS (1)
  - Urticaria [Recovered/Resolved]
